FAERS Safety Report 23282240 (Version 2)
Quarter: 2024Q1

REPORT INFORMATION
  Report Type: Spontaneous
  Country: US (occurrence: US)
  Receive Date: 20231211
  Receipt Date: 20240209
  Transmission Date: 20240410
  Serious: No
  Sender: FDA-Public Use
  Company Number: US-SANOFI-01863722

PATIENT
  Age: 26 Year
  Sex: Female

DRUGS (2)
  1. CEREZYME [Suspect]
     Active Substance: IMIGLUCERASE
     Indication: Gaucher^s disease type III
     Dosage: 10000 MG, QOW
     Route: 065
     Dates: start: 19990830
  2. CEREZYME [Suspect]
     Active Substance: IMIGLUCERASE
     Dosage: 600 MG, QOW
     Route: 042

REACTIONS (3)
  - Illness [Unknown]
  - Off label use [Unknown]
  - Exposure during pregnancy [Unknown]

NARRATIVE: CASE EVENT DATE: 19990830
